FAERS Safety Report 5427367-X (Version None)
Quarter: 2007Q3

REPORT INFORMATION
  Report Type: 
  Country: None (occurrence: None)
  Receive Date: 20070828
  Receipt Date: 20070814
  Transmission Date: 20080115
  Serious: Yes (Hospitalization)
  Sender: FDA-Public Use
  Company Number: FR-AVENTIS-200712623FR

PATIENT
  Age: 61 Year
  Sex: Male

DRUGS (6)
  1. LASILIX                            /00032601/ [Suspect]
     Indication: DRUG USE FOR UNKNOWN INDICATION
     Route: 042
     Dates: start: 20070518, end: 20070518
  2. AMIKLIN                            /00391001/ [Suspect]
     Route: 042
     Dates: start: 20070516, end: 20070517
  3. ALKERAN [Suspect]
     Route: 042
     Dates: start: 20070511, end: 20070511
  4. CIFLOX                             /00697201/ [Suspect]
     Dates: start: 20070516, end: 20070524
  5. TAZOCILLINE [Concomitant]
     Route: 042
     Dates: start: 20070516, end: 20070524
  6. ALLOPURINOL [Concomitant]
     Indication: DRUG USE FOR UNKNOWN INDICATION
     Route: 048

REACTIONS (2)
  - RENAL FAILURE ACUTE [None]
  - RENAL TUBULAR NECROSIS [None]
